FAERS Safety Report 17345145 (Version 2)
Quarter: 2021Q1

REPORT INFORMATION
  Report Type: Spontaneous
  Country: US (occurrence: US)
  Receive Date: 20200129
  Receipt Date: 20210203
  Transmission Date: 20210419
  Serious: No
  Sender: FDA-Public Use
  Company Number: US-ALLERGAN-1953134US

PATIENT
  Age: 42 Year
  Sex: Female

DRUGS (2)
  1. BOTOX [Suspect]
     Active Substance: ONABOTULINUMTOXINA
     Indication: HEADACHE
     Dosage: UNK, SINGLE
     Dates: start: 20191219, end: 20191219
  2. BOTOX [Suspect]
     Active Substance: ONABOTULINUMTOXINA
     Indication: TEMPOROMANDIBULAR JOINT SYNDROME

REACTIONS (9)
  - Pain in jaw [Recovering/Resolving]
  - Facial asymmetry [Recovering/Resolving]
  - Salivary gland disorder [Unknown]
  - Oral disorder [Unknown]
  - Injection site rash [Not Recovered/Not Resolved]
  - Dry mouth [Unknown]
  - Deformity [Unknown]
  - Stomatitis [Unknown]
  - Off label use [Unknown]

NARRATIVE: CASE EVENT DATE: 201912
